FAERS Safety Report 9097509 (Version 2)
Quarter: 2013Q1

REPORT INFORMATION
  Report Type: Spontaneous
  Country: GB (occurrence: GB)
  Receive Date: 20130212
  Receipt Date: 20130225
  Transmission Date: 20140127
  Serious: Yes (Hospitalization, Other)
  Sender: FDA-Public Use
  Company Number: PHFR2013GB001135

PATIENT
  Age: 43 Year
  Sex: Male

DRUGS (8)
  1. CLOZARIL [Suspect]
     Indication: SCHIZOPHRENIA
     Dosage: UNK
     Route: 048
     Dates: start: 20121114
  2. CLOZARIL [Suspect]
     Dosage: 400 MG DAILY
     Dates: start: 20121231, end: 20130201
  3. LITHIUM CARBONATE [Concomitant]
     Indication: AFFECTIVE DISORDER
     Dosage: 800 MG, UNK
     Route: 048
  4. VENLAFAXINE [Concomitant]
     Indication: AFFECTIVE DISORDER
     Dosage: 225 MG, UNK
     Route: 048
  5. METFORMIN [Concomitant]
     Dosage: UNK
  6. GLICLAZIDE [Concomitant]
     Dosage: UNK
  7. OMEPRAZOLE [Concomitant]
     Dosage: UNK
  8. SOLIFENACIN [Concomitant]
     Dosage: UNK

REACTIONS (5)
  - Faecaloma [Recovered/Resolved]
  - Abdominal pain upper [Unknown]
  - Constipation [Recovered/Resolved]
  - White blood cell count increased [Unknown]
  - Neutrophil count increased [Unknown]
